FAERS Safety Report 7809740-5 (Version None)
Quarter: 2011Q4

REPORT INFORMATION
  Report Type: 
  Country: None (occurrence: None)
  Receive Date: 20111012
  Receipt Date: 20111006
  Transmission Date: 20120403
  Serious: Yes (Hospitalization)
  Sender: FDA-Public Use
  Company Number: JP-AMGEN-JPNCT2011051283

PATIENT
  Age: 36 Year
  Sex: Female

DRUGS (14)
  1. DEXAMETHASONE SODIUM PHOSPHATE [Concomitant]
     Indication: PROPHYLAXIS OF NAUSEA AND VOMITING
     Route: 042
     Dates: start: 20110901
  2. MOTILIUM [Concomitant]
     Indication: PROPHYLAXIS OF NAUSEA AND VOMITING
     Route: 048
     Dates: start: 20110922, end: 20110928
  3. FLUOROURACIL [Concomitant]
     Indication: BREAST CANCER
     Route: 042
     Dates: start: 20090901
  4. EMEND [Concomitant]
     Route: 048
     Dates: start: 20110923, end: 20110924
  5. BLINDED PLACEBO [Suspect]
     Indication: BREAST CANCER
     Dosage: UNK, Q4WK
     Route: 058
     Dates: start: 20110901
  6. CYCLOPHOSPHAMIDE [Concomitant]
     Indication: BREAST CANCER
     Route: 042
     Dates: start: 20110901
  7. DECADRON [Concomitant]
     Indication: PROPHYLAXIS OF NAUSEA AND VOMITING
     Route: 048
     Dates: start: 20110922, end: 20110926
  8. EMEND [Concomitant]
     Indication: PROPHYLAXIS OF NAUSEA AND VOMITING
     Route: 048
     Dates: start: 20110922, end: 20110922
  9. BLINDED DENOSUMAB [Suspect]
     Indication: BREAST CANCER
     Dosage: UNK, Q4WK
     Route: 058
     Dates: start: 20110901
  10. CALCIUM CARBONATE [Concomitant]
     Indication: MINERAL SUPPLEMENTATION
     Route: 048
     Dates: start: 20110901
  11. GRANISETRON [Concomitant]
     Indication: PROPHYLAXIS OF NAUSEA AND VOMITING
     Route: 042
     Dates: start: 20110901
  12. EPIRUBICIN HYDROCHLORIDE [Concomitant]
     Indication: BREAST CANCER
     Route: 042
     Dates: start: 20110901
  13. MOTILIUM [Concomitant]
     Dosage: AS NEEDED
     Route: 054
     Dates: start: 20110922, end: 20110922
  14. SELBEX [Concomitant]
     Indication: GASTRITIS PROPHYLAXIS
     Route: 048
     Dates: start: 20110922, end: 20110928

REACTIONS (2)
  - VOMITING [None]
  - NAUSEA [None]
